FAERS Safety Report 6150294-X (Version None)
Quarter: 2009Q2

REPORT INFORMATION
  Report Type: 
  Country: None (occurrence: None)
  Receive Date: 20090409
  Receipt Date: 20090401
  Transmission Date: 20091009
  Serious: Yes (Other)
  Sender: FDA-Public Use
  Company Number: JP-MERCK-0903USA02537

PATIENT
  Age: 60 Year
  Sex: Male

DRUGS (4)
  1. DECADRON [Suspect]
     Indication: PANCYTOPENIA
     Route: 048
  2. DECADRON [Suspect]
     Indication: BLOOD IMMUNOGLOBULIN M INCREASED
     Route: 048
  3. BORTEZOMIB [Suspect]
     Indication: PANCYTOPENIA
     Route: 065
  4. BORTEZOMIB [Suspect]
     Indication: BLOOD IMMUNOGLOBULIN M INCREASED
     Route: 065

REACTIONS (1)
  - DRUG RASH WITH EOSINOPHILIA AND SYSTEMIC SYMPTOMS [None]
